FAERS Safety Report 10424242 (Version 1)
Quarter: 2014Q3

REPORT INFORMATION
  Report Type: Spontaneous
  Country: US (occurrence: US)
  Receive Date: 20140902
  Receipt Date: 20140902
  Transmission Date: 20150326
  Serious: No
  Sender: FDA-Public Use
  Company Number: US-PFIZER INC-2014240693

PATIENT
  Age: 80 Year
  Sex: Female
  Weight: 72.56 kg

DRUGS (2)
  1. ADVIL [Suspect]
     Active Substance: IBUPROFEN
     Indication: ARTHRALGIA
     Dosage: TWO TABLETS OF 200MG IN MORNING AND TWO TABLETS OF 200MG IN LATE AFTERNOON
     Route: 048
     Dates: start: 201402
  2. ANTINAL [Concomitant]
     Dosage: UNK

REACTIONS (2)
  - Blood pressure increased [Unknown]
  - Gait disturbance [Unknown]

NARRATIVE: CASE EVENT DATE: 2014
